FAERS Safety Report 9900441 (Version 2)
Quarter: 2014Q1

REPORT INFORMATION
  Report Type: Spontaneous
  Country: US (occurrence: US)
  Receive Date: 20140217
  Receipt Date: 20140217
  Transmission Date: 20141002
  Serious: Yes (Disabling, Other)
  Sender: FDA-Public Use
  Company Number: US-GE HEALTHCARE MEDICAL DIAGNOSTICS-OSCN-PR-0904S-0199

PATIENT
  Age: 46 Year
  Sex: Male

DRUGS (4)
  1. OMNISCAN [Suspect]
     Indication: ATAXIA
     Route: 042
     Dates: start: 20050924, end: 20050924
  2. OMNISCAN [Suspect]
     Indication: CONFUSIONAL STATE
     Route: 042
     Dates: start: 20060204, end: 20060204
  3. OMNISCAN [Suspect]
     Indication: HEADACHE
     Route: 042
     Dates: start: 20060516, end: 20060516
  4. OMNISCAN [Suspect]
     Indication: SUBDURAL HAEMATOMA
     Route: 042
     Dates: start: 20060521, end: 20060521

REACTIONS (1)
  - Nephrogenic systemic fibrosis [Not Recovered/Not Resolved]
